FAERS Safety Report 9205225 (Version 1)
Quarter: 2013Q2

REPORT INFORMATION
  Report Type: Spontaneous
  Country: US (occurrence: US)
  Receive Date: 20130402
  Receipt Date: 20130402
  Transmission Date: 20140414
  Serious: Yes (Hospitalization)
  Sender: FDA-Public Use
  Company Number: US-LUNDBECK-DKLU1089894

PATIENT
  Sex: Female

DRUGS (2)
  1. SABRIL [Suspect]
     Indication: CONGENITAL NEUROPATHY
     Route: 048
     Dates: start: 2009
  2. SABRIL [Suspect]
     Route: 048

REACTIONS (4)
  - Renal disorder [Unknown]
  - Eye disorder [Unknown]
  - Influenza [Unknown]
  - Convulsion [Unknown]
